FAERS Safety Report 12487350 (Version 1)
Quarter: 2016Q2

REPORT INFORMATION
  Report Type: Spontaneous
  Country: US (occurrence: US)
  Receive Date: 20160622
  Receipt Date: 20160622
  Transmission Date: 20160815
  Serious: No
  Sender: FDA-Public Use
  Company Number: US-BIOGEN-2016BI00248292

PATIENT
  Sex: Female

DRUGS (1)
  1. PLEGRIDY [Suspect]
     Active Substance: PEGINTERFERON BETA-1A
     Indication: MULTIPLE SCLEROSIS
     Route: 058

REACTIONS (7)
  - Migraine [Unknown]
  - Balance disorder [Unknown]
  - Disability [Recovered/Resolved]
  - Injection site irritation [Unknown]
  - Drug intolerance [Unknown]
  - Influenza like illness [Unknown]
  - Insomnia [Unknown]
